FAERS Safety Report 5750865-6 (Version None)
Quarter: 2008Q2

REPORT INFORMATION
  Report Type: 
  Country: None (occurrence: None)
  Receive Date: 20080528
  Receipt Date: 20080514
  Transmission Date: 20081010
  Serious: Yes (Other)
  Sender: FDA-Public Use
  Company Number: US-ELI_LILLY_AND_COMPANY-US200805003274

PATIENT
  Age: 44 Year
  Sex: Male

DRUGS (3)
  1. ZYPREXA [Suspect]
  2. TAGAMET [Concomitant]
  3. CLOMIPRAMINE HCL [Concomitant]
     Indication: OBSESSIVE-COMPULSIVE DISORDER

REACTIONS (3)
  - DRUG INTERACTION [None]
  - OVERDOSE [None]
  - REACTIVE PSYCHOSIS [None]
